FAERS Safety Report 6271546-9 (Version None)
Quarter: 2009Q3

REPORT INFORMATION
  Report Type: 
  Country: None (occurrence: None)
  Receive Date: 20090715
  Receipt Date: 20090715
  Transmission Date: 20100115
  Serious: Yes (Hospitalization)
  Sender: FDA-Public Use
  Company Number: None

PATIENT
  Age: 74 Year
  Sex: Male

DRUGS (2)
  1. LEVOFLOXACIN [Suspect]
     Indication: URINARY TRACT INFECTION
     Dosage: 500 MG OTHER IV
     Route: 042
     Dates: start: 20090513, end: 20090517
  2. PIPERACILLIN [Suspect]
     Dosage: 3.375 MG OTHER IV
     Route: 042
     Dates: start: 20090501, end: 20090508

REACTIONS (1)
  - CLOSTRIDIUM DIFFICILE COLITIS [None]
